FAERS Safety Report 7146673-4 (Version None)
Quarter: 2010Q4

REPORT INFORMATION
  Report Type: 
  Country: None (occurrence: None)
  Receive Date: 20101208
  Receipt Date: 20101202
  Transmission Date: 20110411
  Serious: Yes (Hospitalization)
  Sender: FDA-Public Use
  Company Number: CA-ABBOTT-10P-028-0689358-00

PATIENT
  Weight: 51.302 kg

DRUGS (7)
  1. HUMIRA [Suspect]
     Indication: RHEUMATOID ARTHRITIS
     Route: 058
     Dates: start: 20060101, end: 20101128
  2. WARFARIN SODIUM [Concomitant]
     Indication: ANTICOAGULANT THERAPY
     Route: 048
     Dates: start: 20060101
  3. TRENTEL [Concomitant]
     Indication: PRODUCT USED FOR UNKNOWN INDICATION
     Route: 048
  4. LYRICA [Concomitant]
     Indication: PAIN
     Route: 048
     Dates: start: 20101001
  5. TENTOXISYLLINE [Concomitant]
     Indication: PRODUCT USED FOR UNKNOWN INDICATION
     Route: 048
     Dates: start: 20080101
  6. RALLEPRAZOLE [Concomitant]
     Indication: DYSPEPSIA
     Route: 048
  7. ATORVASTATIN [Concomitant]
     Indication: BLOOD CHOLESTEROL
     Route: 048

REACTIONS (3)
  - DEHYDRATION [None]
  - KIDNEY INFECTION [None]
  - LETHARGY [None]
